FAERS Safety Report 7826700-9 (Version None)
Quarter: 2011Q4

REPORT INFORMATION
  Report Type: 
  Country: None (occurrence: None)
  Receive Date: 20111020
  Receipt Date: 20110714
  Transmission Date: 20120403
  Serious: No
  Sender: FDA-Public Use
  Company Number: US-MYLANLABS-2011S1014892

PATIENT
  Age: 61 Year
  Sex: Female

DRUGS (2)
  1. CLONIDINE [Suspect]
     Route: 062
  2. CLONIDINE [Suspect]
     Indication: BLOOD PRESSURE
     Dosage: CHANGED QW
     Route: 062
     Dates: start: 20110201

REACTIONS (2)
  - BLOOD PRESSURE INCREASED [None]
  - DRUG EFFECT DECREASED [None]
